FAERS Safety Report 7888699-9 (Version None)
Quarter: 2011Q4

REPORT INFORMATION
  Report Type: 
  Country: None (occurrence: None)
  Receive Date: 20111103
  Receipt Date: 20111102
  Transmission Date: 20120403
  Serious: Yes (Life-Threatening)
  Sender: FDA-Public Use
  Company Number: SG-MPIJNJ-2011-05291

PATIENT

DRUGS (2)
  1. PANOBINOSTAT [Suspect]
     Indication: NATURAL KILLER-CELL LYMPHOBLASTIC LYMPHOMA
     Dosage: 25 MG, UNK
     Dates: start: 20110905, end: 20111029
  2. VELCADE [Suspect]
     Indication: NATURAL KILLER-CELL LYMPHOBLASTIC LYMPHOMA
     Dosage: 2.1 MG, UNK
     Route: 042
     Dates: start: 20110905, end: 20111028

REACTIONS (1)
  - THROMBOCYTOPENIA [None]
